FAERS Safety Report 7470325-4 (Version None)
Quarter: 2011Q2

REPORT INFORMATION
  Report Type: 
  Country: None (occurrence: None)
  Receive Date: 20110510
  Receipt Date: 20110429
  Transmission Date: 20111010
  Serious: Yes (Hospitalization)
  Sender: FDA-Public Use
  Company Number: US-ASTRAZENECA-2010SE39321

PATIENT
  Age: 42 Year
  Sex: Male
  Weight: 83.9 kg

DRUGS (35)
  1. SEROQUEL [Suspect]
     Indication: HALLUCINATION, AUDITORY
     Route: 048
     Dates: start: 20050101
  2. SEROQUEL [Suspect]
     Route: 048
  3. GEMFIBROZIL [Interacting]
     Route: 048
  4. PROTONIX [Concomitant]
     Indication: GASTROOESOPHAGEAL REFLUX DISEASE
     Route: 048
  5. SEROQUEL [Suspect]
     Route: 048
     Dates: start: 20090101, end: 20090101
  6. SEROQUEL [Suspect]
     Route: 048
     Dates: start: 20090101
  7. EFFEXOR XR [Suspect]
     Indication: DEPRESSION
     Route: 048
  8. XANAX [Concomitant]
     Dosage: PRN
     Route: 048
  9. GLIPIZIDE [Concomitant]
     Indication: DIABETES MELLITUS
     Route: 048
  10. SEROQUEL [Suspect]
     Route: 048
     Dates: start: 20060101, end: 20090101
  11. SEROQUEL [Suspect]
     Route: 048
     Dates: start: 20060101, end: 20090101
  12. XANAX [Concomitant]
     Indication: ANXIETY
     Route: 048
  13. MULTI-VITAMINS [Concomitant]
  14. OXYCODONE [Concomitant]
     Indication: ARTHRALGIA
     Dosage: 10/650 MG AS REQUIRED
  15. SEROQUEL [Suspect]
     Indication: HALLUCINATION
     Route: 048
     Dates: start: 20050101
  16. SEROQUEL [Suspect]
     Route: 048
     Dates: start: 20090101, end: 20090101
  17. METFORMIN HCL [Concomitant]
     Indication: DIABETES MELLITUS
     Route: 048
  18. OXYCODONE [Concomitant]
     Indication: INTERVERTEBRAL DISC DISORDER
     Dosage: 10/650 MG AS REQUIRED
  19. SEROQUEL [Suspect]
     Indication: BIPOLAR DISORDER
     Route: 048
     Dates: start: 20050101
  20. SEROQUEL [Suspect]
     Route: 048
     Dates: start: 20060101, end: 20090101
  21. LEVAMIR [Concomitant]
     Indication: DIABETES MELLITUS
     Dosage: AS REQUIRED
     Route: 050
  22. IBUPROFEN [Concomitant]
     Indication: TOOTH DISORDER
  23. SEROQUEL [Suspect]
     Route: 048
     Dates: start: 20100601, end: 20100601
  24. SEROQUEL [Suspect]
     Route: 048
     Dates: start: 20100601, end: 20100601
  25. SEROQUEL [Suspect]
     Route: 048
  26. SEROQUEL [Suspect]
     Route: 048
     Dates: start: 20090101
  27. GEMFIBROZIL [Interacting]
     Indication: HYPERCHOLESTEROLAEMIA
     Route: 048
  28. AMOXICILLIN [Concomitant]
     Indication: TOOTH DISORDER
  29. CRESTOR [Interacting]
     Indication: HYPERCHOLESTEROLAEMIA
     Route: 048
  30. SEROQUEL [Suspect]
     Route: 048
  31. SEROQUEL [Suspect]
     Route: 048
     Dates: start: 20090101, end: 20090101
  32. SEROQUEL [Suspect]
     Route: 048
     Dates: start: 20090101
  33. PROTONIX [Concomitant]
     Indication: ULCER
     Route: 048
  34. SEROQUEL [Suspect]
     Route: 048
     Dates: start: 20100601, end: 20100601
  35. NOVOLOG [Concomitant]
     Indication: DIABETES MELLITUS
     Dosage: AS REQUIRED
     Route: 050

REACTIONS (24)
  - EATING DISORDER [None]
  - ANXIETY [None]
  - DRUG INEFFECTIVE [None]
  - NIGHTMARE [None]
  - DISTURBANCE IN ATTENTION [None]
  - TESTICULAR CYST [None]
  - DRUG DOSE OMISSION [None]
  - DIZZINESS [None]
  - CYST REMOVAL [None]
  - MOOD SWINGS [None]
  - HYPERGLYCAEMIA [None]
  - LETHARGY [None]
  - BLOOD CHOLESTEROL INCREASED [None]
  - DIABETES MELLITUS [None]
  - WEIGHT DECREASED [None]
  - THERAPEUTIC RESPONSE UNEXPECTED [None]
  - IRRITABILITY [None]
  - DEPRESSION [None]
  - DRUG INTERACTION [None]
  - GINGIVAL INFECTION [None]
  - BONE PAIN [None]
  - HEADACHE [None]
  - FEELING ABNORMAL [None]
  - TOOTH EXTRACTION [None]
